FAERS Safety Report 9224292 (Version 1)
Quarter: 2013Q2

REPORT INFORMATION
  Report Type: Spontaneous
  Country: US (occurrence: None)
  Receive Date: 20130409
  Receipt Date: 20130409
  Transmission Date: 20140414
  Serious: Yes (Other)
  Sender: FDA-Public Use
  Company Number: None

PATIENT
  Age: 85 Year
  Sex: Female
  Weight: 92.99 kg

DRUGS (1)
  1. BRILINTA [Suspect]
     Dosage: 2 PILLS DAILY

REACTIONS (4)
  - Dyspnoea [None]
  - Abasia [None]
  - Balance disorder [None]
  - Gait disturbance [None]
